FAERS Safety Report 15628724 (Version 2)
Quarter: 2019Q2

REPORT INFORMATION
  Report Type: Spontaneous
  Country: US (occurrence: US)
  Receive Date: 20181116
  Receipt Date: 20190429
  Transmission Date: 20190711
  Serious: Yes (Other)
  Sender: FDA-Public Use
  Company Number: US-PFIZER INC-2018468496

PATIENT
  Age: 79 Year
  Sex: Female
  Weight: 74 kg

DRUGS (1)
  1. IBRANCE [Suspect]
     Active Substance: PALBOCICLIB
     Indication: BREAST CANCER METASTATIC
     Dosage: 100 MG, CYCLIC (ONCE PER DAY BY MOUTH IN THE EVENING FOR 21 DAYS AND THEN 7 DAYS OFF)
     Route: 048
     Dates: start: 201812

REACTIONS (6)
  - Cerebrovascular accident [Unknown]
  - Dyspnoea [Unknown]
  - White blood cell count decreased [Unknown]
  - Hypotension [Unknown]
  - Malaise [Unknown]
  - Fatigue [Unknown]
